FAERS Safety Report 14132085 (Version 1)
Quarter: 2017Q4

REPORT INFORMATION
  Report Type: Spontaneous
  Country: GB (occurrence: GB)
  Receive Date: 20171027
  Receipt Date: 20171027
  Transmission Date: 20180321
  Serious: Yes (Life-Threatening, Other)
  Sender: FDA-Public Use
  Company Number: GB-GLENMARK PHARMACEUTICALS-2017GMK029312

PATIENT

DRUGS (7)
  1. SALBUTAMOL [Suspect]
     Active Substance: ALBUTEROL
     Indication: PRODUCT USED FOR UNKNOWN INDICATION
     Dosage: UNK, CONTINUOUS SALBUTAMOL
     Route: 055
  2. AMINOPHYLLINE. [Suspect]
     Active Substance: AMINOPHYLLINE
     Dosage: UNK, LOADING DOSE
     Route: 065
  3. IPRATROPIUM BROMIDE. [Suspect]
     Active Substance: IPRATROPIUM BROMIDE
     Indication: PRODUCT USED FOR UNKNOWN INDICATION
     Dosage: UNK, IPRATROPIUM NEBULISERS
     Route: 055
  4. SALBUTAMOL [Suspect]
     Active Substance: ALBUTEROL
     Dosage: UNK, LOADING DOSE
     Route: 042
  5. AMINOPHYLLINE. [Suspect]
     Active Substance: AMINOPHYLLINE
     Indication: PRODUCT USED FOR UNKNOWN INDICATION
     Dosage: UNK, LOADING DOSE AND INFUSION
  6. MAGNESIUM SULFATE. [Suspect]
     Active Substance: MAGNESIUM SULFATE
     Indication: PRODUCT USED FOR UNKNOWN INDICATION
     Dosage: UNK
     Route: 065
  7. HYDROCORTISONE BUTYRATE. [Suspect]
     Active Substance: HYDROCORTISONE BUTYRATE
     Indication: PRODUCT USED FOR UNKNOWN INDICATION
     Dosage: 4 MG/KG, UNK
     Route: 065

REACTIONS (1)
  - Drug ineffective [Unknown]
